FAERS Safety Report 19555105 (Version 3)
Quarter: 2021Q4

REPORT INFORMATION
  Report Type: Report from Study
  Country: None (occurrence: AU)
  Receive Date: 20210716
  Receipt Date: 20211018
  Transmission Date: 20220303
  Serious: Yes (Hospitalization)
  Sender: FDA-Public Use
  Company Number: AU-ABBVIE-21K-008-3987424-00

PATIENT
  Age: 83 Year
  Sex: Female

DRUGS (2)
  1. CARBIDOPA\LEVODOPA [Suspect]
     Active Substance: CARBIDOPA\LEVODOPA
     Indication: Parkinson^s disease
     Route: 050
     Dates: start: 20210422
  2. CARBIDOPA\LEVODOPA [Suspect]
     Active Substance: CARBIDOPA\LEVODOPA

REACTIONS (8)
  - Off label use [Recovered/Resolved]
  - Device occlusion [Recovered/Resolved]
  - Hospitalisation [Unknown]
  - Device kink [Recovered/Resolved]
  - Mobility decreased [Not Recovered/Not Resolved]
  - Cognitive disorder [Not Recovered/Not Resolved]
  - Fall [Unknown]
  - Device dislocation [Unknown]

NARRATIVE: CASE EVENT DATE: 20210101
